FAERS Safety Report 17263307 (Version 1)
Quarter: 2019Q4

REPORT INFORMATION
  Report Type: Spontaneous
  Country: US (occurrence: US)
  Receive Date: 20191218
  Receipt Date: 20191218
  Transmission Date: 20200122
  Serious: Yes (Other)
  Sender: FDA-Public Use
  Company Number: None

PATIENT

DRUGS (1)
  1. GOODYS EXTRA STRENGTH HEADACHE MIXED FRUIT BLAST [Suspect]
     Active Substance: ACETAMINOPHEN\ASPIRIN\CAFFEINE
     Dosage: ?          QUANTITY:4 POWER PACKS;?

REACTIONS (3)
  - Circumstance or information capable of leading to medication error [None]
  - Wrong product stored [None]
  - Product label issue [None]
